FAERS Safety Report 6089360-6 (Version None)
Quarter: 2009Q1

REPORT INFORMATION
  Report Type: 
  Country: None (occurrence: None)
  Receive Date: 20090224
  Receipt Date: 20090212
  Transmission Date: 20090719
  Serious: Yes (Death, Hospitalization)
  Sender: FDA-Public Use
  Company Number: JP-JNJFOC-20071202421

PATIENT
  Sex: Female
  Weight: 49 kg

DRUGS (20)
  1. REMICADE [Suspect]
     Route: 042
  2. REMICADE [Suspect]
     Route: 042
  3. REMICADE [Suspect]
     Route: 042
  4. REMICADE [Suspect]
     Route: 042
  5. REMICADE [Suspect]
     Route: 042
  6. REMICADE [Suspect]
     Indication: RHEUMATOID ARTHRITIS
     Route: 042
  7. RHEUMATREX [Suspect]
     Indication: RHEUMATOID ARTHRITIS
     Route: 048
  8. PREDNISOLONE [Suspect]
     Indication: RHEUMATOID ARTHRITIS
     Route: 048
  9. STEROID [Concomitant]
     Route: 048
  10. VFEND [Concomitant]
  11. CYTOTEC [Concomitant]
     Indication: GASTRIC ULCER
     Route: 048
  12. FOLIAMIN [Concomitant]
     Indication: STOMATITIS
     Route: 048
  13. FOLIAMIN [Concomitant]
     Indication: FOLATE DEFICIENCY
     Route: 048
  14. FOLIAMIN [Concomitant]
     Indication: ANAEMIA
     Route: 048
  15. ITRIZOLE [Concomitant]
  16. FUNGUARD [Concomitant]
  17. FERROMIA [Concomitant]
     Indication: IRON DEFICIENCY ANAEMIA
     Route: 048
  18. MEVALOTIN [Concomitant]
     Indication: HYPERLIPIDAEMIA
     Route: 048
  19. VOLTAREN [Concomitant]
     Indication: RHEUMATOID ARTHRITIS
     Route: 048
  20. ALENDRONATE SODIUM [Concomitant]
     Indication: OSTEOPOROSIS
     Route: 048

REACTIONS (6)
  - ACUTE RESPIRATORY DISTRESS SYNDROME [None]
  - ANIMAL BITE [None]
  - BRONCHOPULMONARY ASPERGILLOSIS [None]
  - DISSEMINATED INTRAVASCULAR COAGULATION [None]
  - PNEUMOCYSTIS JIROVECI INFECTION [None]
  - PNEUMONIA CYTOMEGALOVIRAL [None]
